FAERS Safety Report 24570539 (Version 2)
Quarter: 2024Q4

REPORT INFORMATION
  Report Type: Spontaneous
  Country: CN (occurrence: CN)
  Receive Date: 20241031
  Receipt Date: 20241205
  Transmission Date: 20250115
  Serious: Yes (Death)
  Sender: PARATEK PHARMACEUTICALS
  Company Number: CN-PARATEK PHARMACEUTICALS, INC.-2024PTK00970

PATIENT
  Age: 75 Year
  Sex: Male

DRUGS (3)
  1. OMADACYCLINE [Suspect]
     Active Substance: OMADACYCLINE
     Indication: Pneumonia klebsiella
     Dosage: 100 MG, 1X/DAY
     Route: 042
  2. UNSPECIFIED INGREDIENT [Suspect]
     Active Substance: UNSPECIFIED INGREDIENT
     Indication: Pneumonia
  3. COLISTIN [Suspect]
     Active Substance: COLISTIN
     Indication: Pneumonia klebsiella
     Dosage: (COMBINATION WITH OMADACYCLINE)
     Route: 042

REACTIONS (1)
  - Drug ineffective [Fatal]
